FAERS Safety Report 8522532-7 (Version None)
Quarter: 2012Q3

REPORT INFORMATION
  Report Type: 
  Country: None (occurrence: None)
  Receive Date: 20120719
  Receipt Date: 20120709
  Transmission Date: 20120928
  Serious: Yes (Hospitalization, Other)
  Sender: FDA-Public Use
  Company Number: JP-BRISTOL-MYERS SQUIBB COMPANY-16409344

PATIENT
  Age: 38 Year
  Sex: Male

DRUGS (6)
  1. AMARYL [Suspect]
     Indication: TYPE 2 DIABETES MELLITUS
     Route: 048
     Dates: start: 20120203, end: 20120207
  2. METFORMIN HCL [Suspect]
     Indication: TYPE 2 DIABETES MELLITUS
     Dosage: 500 MG MOR + NIGHT
     Route: 048
     Dates: start: 20120203, end: 20120207
  3. SITAGLIPTIN PHOSPHATE [Suspect]
     Indication: TYPE 2 DIABETES MELLITUS
     Route: 048
     Dates: start: 20120203, end: 20120207
  4. FLOMAX [Concomitant]
     Dates: start: 20120206
  5. MOTILIUM [Concomitant]
     Dates: start: 20120206
  6. CEFAZOLIN SODIUM [Concomitant]
     Dosage: TABS
     Dates: start: 20120206

REACTIONS (4)
  - ILEUS PARALYTIC [None]
  - DIARRHOEA [None]
  - VOMITING [None]
  - NAUSEA [None]
